FAERS Safety Report 9337964 (Version 5)
Quarter: 2015Q1

REPORT INFORMATION
  Report Type: Spontaneous
  Country: US (occurrence: US)
  Receive Date: 20130609
  Receipt Date: 20150317
  Transmission Date: 20150721
  Serious: Yes (Hospitalization, Other)
  Sender: FDA-Public Use
  Company Number: US-009507513-1305USA017821

PATIENT
  Sex: Female
  Weight: 58.5 kg

DRUGS (7)
  1. LISINOPRIL. [Concomitant]
     Active Substance: LISINOPRIL
     Dosage: 10 MG, QD
     Dates: start: 2000
  2. ASPIRIN. [Concomitant]
     Active Substance: ASPIRIN
     Dosage: 81 MG, UNK
     Dates: start: 2000
  3. FOSAMAX PLUS D [Suspect]
     Active Substance: ALENDRONATE SODIUM\CHOLECALCIFEROL
     Indication: OSTEOPOROSIS
     Dosage: 70 MG/2800 IU QW
     Route: 048
     Dates: start: 2007, end: 2009
  4. FOSAMAX [Suspect]
     Active Substance: ALENDRONATE SODIUM
     Indication: OSTEOPOROSIS
     Dosage: 70 MG, QW
     Route: 048
     Dates: start: 2000
  5. METFORMIN [Concomitant]
     Active Substance: METFORMIN HYDROCHLORIDE
     Indication: TYPE 2 DIABETES MELLITUS
     Dosage: 500 MG, BID
     Route: 048
     Dates: start: 1987
  6. ALENDRONATE SODIUM. [Suspect]
     Active Substance: ALENDRONATE SODIUM
     Indication: OSTEOPOROSIS
     Dosage: 70 MG, UNK
     Route: 048
     Dates: start: 2009, end: 20100510
  7. SIMVASTATIN. [Concomitant]
     Active Substance: SIMVASTATIN
     Dosage: 20 MG, BID
     Dates: start: 2000

REACTIONS (28)
  - Open reduction of fracture [Unknown]
  - Intervertebral disc disorder [Unknown]
  - Depression [Unknown]
  - Sciatica [Unknown]
  - Myelodysplastic syndrome [Unknown]
  - Radius fracture [Unknown]
  - Open reduction of fracture [Unknown]
  - Cholecystectomy [Unknown]
  - Osteopenia [Unknown]
  - Hyperlipidaemia [Unknown]
  - Cataract [Unknown]
  - Neck pain [Unknown]
  - Carotid artery stenosis [Unknown]
  - Hypertension [Unknown]
  - Radius fracture [Unknown]
  - Fall [Unknown]
  - Diabetic neuropathy [Unknown]
  - Osteoarthritis [Unknown]
  - Fall [Unknown]
  - Femur fracture [Recovered/Resolved]
  - Intramedullary rod insertion [Unknown]
  - Radius fracture [Unknown]
  - Chronic kidney disease [Not Recovered/Not Resolved]
  - Diabetic retinopathy [Unknown]
  - Ankle fracture [Unknown]
  - Anaemia postoperative [Unknown]
  - Iron deficiency anaemia [Unknown]
  - Carpal tunnel syndrome [Unknown]

NARRATIVE: CASE EVENT DATE: 2000
